FAERS Safety Report 17894211 (Version 4)
Quarter: 2020Q4

REPORT INFORMATION
  Report Type: Report from Study
  Country: JP (occurrence: JP)
  Receive Date: 20200615
  Receipt Date: 20201113
  Transmission Date: 20210113
  Serious: Yes (Death, Other)
  Sender: FDA-Public Use
  Company Number: JP-GLAXOSMITHKLINE-JP2020JPN099115

PATIENT
  Age: 40 Year
  Sex: Female
  Weight: 51 kg

DRUGS (14)
  1. INSULIN [Suspect]
     Active Substance: INSULIN NOS
     Dosage: UNK
  2. PREDONINE [Concomitant]
     Active Substance: PREDNISOLONE
     Indication: SYSTEMIC LUPUS ERYTHEMATOSUS
     Dosage: 10 MG, 1D
     Route: 048
  3. FUROSEMIDE. [Concomitant]
     Active Substance: FUROSEMIDE
  4. BELIMUMAB SUBCUTANEOUS [Suspect]
     Active Substance: BELIMUMAB
     Indication: SYSTEMIC LUPUS ERYTHEMATOSUS
     Dosage: 200 MG, WE
     Route: 058
     Dates: start: 20181219, end: 20190727
  5. DIOVAN [Concomitant]
     Active Substance: VALSARTAN
  6. PERSANTIN [Concomitant]
     Active Substance: DIPYRIDAMOLE
  7. ONEALFA [Concomitant]
     Active Substance: ALFACALCIDOL
  8. PLAQUENIL [Concomitant]
     Active Substance: HYDROXYCHLOROQUINE SULFATE
  9. JUVELA [Concomitant]
     Active Substance: .ALPHA.-TOCOPHEROL\RETINOL
  10. AMOBAN [Concomitant]
     Active Substance: ZOPICLONE
  11. PARIET [Concomitant]
     Active Substance: RABEPRAZOLE SODIUM
  12. BREDININ [Concomitant]
     Active Substance: MIZORIBINE
  13. CINAL [Concomitant]
  14. TACROLIMUS. [Concomitant]
     Active Substance: TACROLIMUS

REACTIONS (3)
  - Hypoglycaemia [Unknown]
  - Completed suicide [Fatal]
  - Hypoglycaemic encephalopathy [Fatal]

NARRATIVE: CASE EVENT DATE: 2019
